FAERS Safety Report 24041707 (Version 2)
Quarter: 2024Q3

REPORT INFORMATION
  Report Type: Spontaneous
  Country: JP (occurrence: JP)
  Receive Date: 20240702
  Receipt Date: 20240711
  Transmission Date: 20241017
  Serious: Yes (Other)
  Sender: MALLINCKRODT
  Company Number: JP-MALLINCKRODT-MNK202404216

PATIENT
  Age: 50 Year
  Sex: Male

DRUGS (11)
  1. NITRIC OXIDE [Suspect]
     Active Substance: NITRIC OXIDE
     Indication: Pulmonary hypertension
     Dosage: 20 PPM
     Route: 055
  2. NITRIC OXIDE [Suspect]
     Active Substance: NITRIC OXIDE
     Dosage: 30 PPM(DOSE INCREASED)
     Route: 055
  3. NITRIC OXIDE [Suspect]
     Active Substance: NITRIC OXIDE
     Dosage: 40 PPM(DOSE INCREASED)
     Route: 055
  4. NITRIC OXIDE [Suspect]
     Active Substance: NITRIC OXIDE
     Dosage: 30 PPM (DOSE TAPERED)
     Route: 055
  5. NITRIC OXIDE [Suspect]
     Active Substance: NITRIC OXIDE
     Dosage: 20 PPM (DOSE TAPERED)
     Route: 055
  6. NITRIC OXIDE [Suspect]
     Active Substance: NITRIC OXIDE
     Dosage: 15 PPM (DOSE TAPERED)
     Route: 055
  7. NITRIC OXIDE [Suspect]
     Active Substance: NITRIC OXIDE
     Dosage: 10 PPM (DOSE TAPERED)
     Route: 055
  8. NITRIC OXIDE [Suspect]
     Active Substance: NITRIC OXIDE
     Dosage: 5 PPM (DOSE TAPERED)
     Route: 055
  9. NITRIC OXIDE [Suspect]
     Active Substance: NITRIC OXIDE
     Dosage: 4 PPM (DOSE TAPERED)
     Route: 055
  10. NITRIC OXIDE [Suspect]
     Active Substance: NITRIC OXIDE
     Dosage: 3 PPM (DOSE TAPERED)
     Route: 055
  11. NITRIC OXIDE [Suspect]
     Active Substance: NITRIC OXIDE
     Dosage: 2 PPM (DOSE TAPERED)
     Route: 055

REACTIONS (1)
  - Pneumonia [Recovered/Resolved]
